FAERS Safety Report 19939667 (Version 1)
Quarter: 2021Q4

REPORT INFORMATION
  Report Type: Spontaneous
  Country: US (occurrence: US)
  Receive Date: 20211012
  Receipt Date: 20211012
  Transmission Date: 20220303
  Serious: Yes (Other)
  Sender: FDA-Public Use
  Company Number: US-AXELLIA-003857

PATIENT
  Age: 85 Year
  Sex: Female
  Weight: 158 kg

DRUGS (1)
  1. VANCOMYCIN [Suspect]
     Active Substance: VANCOMYCIN
     Indication: Clostridium difficile colitis
     Dosage: STRENGTH: 125 MG
     Route: 048
     Dates: start: 20210322

REACTIONS (2)
  - Drug ineffective [Unknown]
  - Product use issue [Unknown]
